FAERS Safety Report 18275449 (Version 1)
Quarter: 2020Q3

REPORT INFORMATION
  Report Type: Other
  Country: US (occurrence: US)
  Receive Date: 20200916
  Receipt Date: 20200916
  Transmission Date: 20201103
  Serious: No
  Sender: FDA-Public Use
  Company Number: US-LEADIANT BIOSCIENCES INC-2020STPI000311

PATIENT
  Sex: Male

DRUGS (13)
  1. TRIAMCINOLONE [Concomitant]
     Active Substance: TRIAMCINOLONE
  2. MATULANE [Suspect]
     Active Substance: PROCARBAZINE HYDROCHLORIDE
     Indication: BRAIN NEOPLASM MALIGNANT
     Dosage: 1 CAPSULE IN DAY 8, 2 CAPSULES ON DAY 9, 3 CAPSULES FROM DAY 10?20
     Route: 048
     Dates: start: 20190806
  3. BENAZEPRIL [Concomitant]
     Active Substance: BENAZEPRIL HYDROCHLORIDE
  4. XARELTO [Suspect]
     Active Substance: RIVAROXABAN
  5. MULTAQ [Concomitant]
     Active Substance: DRONEDARONE
  6. COREG [Concomitant]
     Active Substance: CARVEDILOL
  7. GLEOSTINE [Concomitant]
     Active Substance: LOMUSTINE
  8. ASPRIN [Concomitant]
     Active Substance: ASPIRIN
  9. NAPROSYN [Concomitant]
     Active Substance: NAPROXEN
  10. CETRIZINE [Concomitant]
     Active Substance: CETIRIZINE HYDROCHLORIDE
  11. DIGOXIN. [Concomitant]
     Active Substance: DIGOXIN
  12. DILTIAZEM. [Concomitant]
     Active Substance: DILTIAZEM
  13. KEPPRA [Concomitant]
     Active Substance: LEVETIRACETAM

REACTIONS (2)
  - Constipation [Not Recovered/Not Resolved]
  - Nausea [Not Recovered/Not Resolved]
